FAERS Safety Report 21251415 (Version 2)
Quarter: 2022Q3

REPORT INFORMATION
  Report Type: Spontaneous
  Country: US (occurrence: US)
  Receive Date: 20220825
  Receipt Date: 20220907
  Transmission Date: 20221026
  Serious: Yes (Hospitalization, Other)
  Sender: FDA-Public Use
  Company Number: US-GBT-015450

PATIENT
  Sex: Female

DRUGS (2)
  1. OXBRYTA [Suspect]
     Active Substance: VOXELOTOR
     Indication: Sickle cell disease
     Route: 048
     Dates: start: 20220626
  2. OXBRYTA [Suspect]
     Active Substance: VOXELOTOR
     Indication: Sickle cell disease

REACTIONS (7)
  - Sickle cell anaemia with crisis [Recovering/Resolving]
  - Pneumonia [Unknown]
  - Nausea [Unknown]
  - Off label use [Unknown]
  - Product dose omission issue [Unknown]
  - Thrombosis [Unknown]
  - Epistaxis [Unknown]
